FAERS Safety Report 4397330-9 (Version None)
Quarter: 2004Q3

REPORT INFORMATION
  Report Type: 
  Country: None (occurrence: None)
  Receive Date: 20040714
  Receipt Date: 20040702
  Transmission Date: 20050211
  Serious: Yes (Hospitalization)
  Sender: FDA-Public Use
  Company Number: GB-GLAXOSMITHKLINE-B0337631A

PATIENT
  Sex: Female

DRUGS (1)
  1. AUGMENTIN '125' [Suspect]
     Route: 065
     Dates: start: 19960101, end: 19960101

REACTIONS (4)
  - CANDIDIASIS [None]
  - OROPHARYNGEAL SWELLING [None]
  - RASH [None]
  - URINARY RETENTION [None]
